FAERS Safety Report 13737741 (Version 1)
Quarter: 2017Q3

REPORT INFORMATION
  Report Type: Spontaneous
  Country: US (occurrence: US)
  Receive Date: 20170710
  Receipt Date: 20170710
  Transmission Date: 20171127
  Serious: Yes (Other)
  Sender: FDA-Public Use
  Company Number: US-SAOL THERAPEUTICS-2016SAO00433

PATIENT
  Age: 59 Year
  Sex: Female

DRUGS (4)
  1. COMPOUNDED BACLOFEN [Suspect]
     Active Substance: BACLOFEN
     Indication: MUSCLE SPASTICITY
  2. SUFENTANIL [Suspect]
     Active Substance: SUFENTANIL
     Indication: MUSCLE SPASTICITY
  3. SUFENTANIL [Suspect]
     Active Substance: SUFENTANIL
     Indication: MULTIPLE SCLEROSIS
     Dosage: 215.21 ?G, \DAY
     Route: 037
     Dates: end: 20160805
  4. COMPOUNDED BACLOFEN [Suspect]
     Active Substance: BACLOFEN
     Indication: MULTIPLE SCLEROSIS
     Dosage: 931.6 ?G, \DAY
     Route: 037

REACTIONS (1)
  - Drug withdrawal syndrome [Recovered/Resolved]

NARRATIVE: CASE EVENT DATE: 20160804
